FAERS Safety Report 6290961-0 (Version None)
Quarter: 2009Q3

REPORT INFORMATION
  Report Type: 
  Country: None (occurrence: None)
  Receive Date: 20090729
  Receipt Date: 20090729
  Transmission Date: 20100115
  Serious: Yes (Hospitalization)
  Sender: FDA-Public Use
  Company Number: None

PATIENT

DRUGS (11)
  1. CASODEX [Suspect]
     Dosage: 114 MG
  2. TAXOTERE [Suspect]
     Dosage: 162 MG
  3. LEUPROLIDE ACETATE [Suspect]
     Dosage: 60 MG
  4. PREDNISONE TAB [Suspect]
     Dosage: 110 MG
  5. ASPIRIN [Concomitant]
  6. ATENOLOL [Concomitant]
  7. ATIVAN [Concomitant]
  8. DECADRON [Concomitant]
  9. LOPID [Concomitant]
  10. MONOPRIL [Concomitant]
  11. VERAPAMIL [Concomitant]

REACTIONS (5)
  - BODY TEMPERATURE INCREASED [None]
  - DYSURIA [None]
  - HAEMATURIA [None]
  - LOSS OF CONSCIOUSNESS [None]
  - NEUTROPHIL COUNT DECREASED [None]
